FAERS Safety Report 17401409 (Version 1)
Quarter: 2020Q1

REPORT INFORMATION
  Report Type: Spontaneous
  Country: US (occurrence: US)
  Receive Date: 20200127
  Receipt Date: 20200127
  Transmission Date: 20200409
  Serious: No
  Sender: FDA-Public Use
  Company Number: None

PATIENT
  Age: 5 Year

DRUGS (1)
  1. JUUL [DEVICE\NICOTINE] [Suspect]
     Active Substance: DEVICE\NICOTINE

REACTIONS (5)
  - Fall [None]
  - Vomiting [None]
  - Concussion [None]
  - Syncope [None]
  - Seizure [None]
